FAERS Safety Report 4813697-9 (Version None)
Quarter: 2005Q4

REPORT INFORMATION
  Report Type: 
  Country: None (occurrence: None)
  Receive Date: 20051028
  Receipt Date: 20050623
  Transmission Date: 20060501
  Serious: No
  Sender: FDA-Public Use
  Company Number: US-GLAXOSMITHKLINE-A0563923A

PATIENT
  Sex: Female

DRUGS (2)
  1. IMITREX [Suspect]
     Indication: DRUG USE FOR UNKNOWN INDICATION
     Dosage: 20MG UNKNOWN
     Route: 065
  2. NO CONCURRENT MEDICATION [Concomitant]

REACTIONS (1)
  - EPISTAXIS [None]
